FAERS Safety Report 4479453-9 (Version None)
Quarter: 2004Q4

REPORT INFORMATION
  Report Type: 
  Country: None (occurrence: None)
  Receive Date: 20041015
  Receipt Date: 20041005
  Transmission Date: 20050328
  Serious: Yes (Other)
  Sender: FDA-Public Use
  Company Number: 2004237071US

PATIENT
  Age: 25 Year
  Sex: Female

DRUGS (1)
  1. XANAX [Suspect]
     Dosage: 1 MG, PRN, ORAL
     Route: 048
     Dates: start: 20020101

REACTIONS (1)
  - SUICIDE ATTEMPT [None]
